FAERS Safety Report 5206274-1 (Version None)
Quarter: 2006Q4

REPORT INFORMATION
  Report Type: 
  Country: None (occurrence: None)
  Receive Date: 20061026
  Receipt Date: 20060926
  Transmission Date: 20070319
  Serious: Yes (Other)
  Sender: FDA-Public Use
  Company Number: 2006111157

PATIENT

DRUGS (1)
  1. LYRICA [Suspect]
     Dosage: (300 MG)

REACTIONS (1)
  - SUICIDAL IDEATION [None]
